FAERS Safety Report 7487041-5 (Version None)
Quarter: 2011Q2

REPORT INFORMATION
  Report Type: 
  Country: None (occurrence: None)
  Receive Date: 20110518
  Receipt Date: 20110509
  Transmission Date: 20111010
  Serious: Yes (Hospitalization)
  Sender: FDA-Public Use
  Company Number: US-BIOGENIDEC-2010BI042421

PATIENT
  Age: 44 Year
  Sex: Female

DRUGS (1)
  1. TYSABRI [Suspect]
     Indication: MULTIPLE SCLEROSIS
     Route: 042
     Dates: start: 20081009

REACTIONS (6)
  - FALL [None]
  - URINARY TRACT INFECTION [None]
  - WOUND DEHISCENCE [None]
  - FATIGUE [None]
  - UTERINE PROLAPSE [None]
  - VERTIGO [None]
